FAERS Safety Report 10880573 (Version 2)
Quarter: 2015Q1

REPORT INFORMATION
  Report Type: Spontaneous
  Country: US (occurrence: US)
  Receive Date: 20150303
  Receipt Date: 20150309
  Transmission Date: 20150721
  Serious: Yes (Death, Other)
  Sender: FDA-Public Use
  Company Number: US-ROCHE-1546390

PATIENT
  Age: 78 Year
  Sex: Male

DRUGS (2)
  1. OXALIPLATIN. [Concomitant]
     Active Substance: OXALIPLATIN
     Dosage: 1 DOSE
     Route: 065
  2. XELODA [Suspect]
     Active Substance: CAPECITABINE
     Indication: OESOPHAGEAL CARCINOMA
     Route: 048
     Dates: start: 20150113, end: 20150116

REACTIONS (4)
  - Herpes zoster [Unknown]
  - Organ failure [Fatal]
  - Oesophagitis [Fatal]
  - Bone marrow failure [Unknown]

NARRATIVE: CASE EVENT DATE: 20150117
